FAERS Safety Report 14629364 (Version 1)
Quarter: 2018Q1

REPORT INFORMATION
  Report Type: Spontaneous
  Country: US (occurrence: US)
  Receive Date: 20180312
  Receipt Date: 20180312
  Transmission Date: 20180509
  Serious: Yes (Other)
  Sender: FDA-Public Use
  Company Number: None

PATIENT
  Age: 26 Year
  Sex: Female
  Weight: 103.5 kg

DRUGS (1)
  1. FLUOXETINE 20MG CAPSULES [Suspect]
     Active Substance: FLUOXETINE HYDROCHLORIDE
     Indication: GENERALISED ANXIETY DISORDER
     Dosage: ?          QUANTITY:1 CAPSULE(S);?
     Dates: start: 20180308, end: 20180311

REACTIONS (7)
  - Pharyngeal oedema [None]
  - Cough [None]
  - Hypoaesthesia oral [None]
  - Dyspnoea [None]
  - Mouth swelling [None]
  - Chest discomfort [None]
  - Anaphylactic reaction [None]

NARRATIVE: CASE EVENT DATE: 20180311
